FAERS Safety Report 4551514-5 (Version None)
Quarter: 2005Q1

REPORT INFORMATION
  Report Type: 
  Country: None (occurrence: None)
  Receive Date: 20050111
  Receipt Date: 20050103
  Transmission Date: 20050727
  Serious: Yes (Hospitalization)
  Sender: FDA-Public Use
  Company Number: CIP05000016

PATIENT
  Age: 75 Year
  Sex: Female

DRUGS (2)
  1. ACTONEL [Suspect]
     Dosage: 35MG, ORAL
     Route: 048
     Dates: start: 20041201
  2. COUMADIN [Suspect]

REACTIONS (1)
  - EPISTAXIS [None]
